FAERS Safety Report 10178472 (Version 3)
Quarter: 2014Q3

REPORT INFORMATION
  Report Type: Spontaneous
  Country: US (occurrence: US)
  Receive Date: 20140519
  Receipt Date: 20140721
  Transmission Date: 20150326
  Serious: Yes (Life-Threatening, Hospitalization)
  Sender: FDA-Public Use
  Company Number: US-JNJFOC-20140505679

PATIENT
  Age: 33 Year
  Sex: Female

DRUGS (4)
  1. MELATONIN [Suspect]
     Active Substance: MELATONIN
     Indication: SLEEP DISORDER THERAPY
     Route: 065
  2. ALEVE [Suspect]
     Active Substance: NAPROXEN SODIUM
     Indication: PAIN
     Route: 065
  3. ORTHO CYCLEN [Suspect]
     Active Substance: ETHINYL ESTRADIOL\NORGESTIMATE
     Indication: CONTRACEPTION
     Route: 048
     Dates: start: 201401, end: 20140408
  4. UNISOM 2 [Suspect]
     Active Substance: DOXYLAMINE SUCCINATE
     Indication: SLEEP DISORDER THERAPY

REACTIONS (4)
  - Pulmonary hypertension [Unknown]
  - Pulmonary embolism [Unknown]
  - Syncope [Recovering/Resolving]
  - Deep vein thrombosis [Unknown]

NARRATIVE: CASE EVENT DATE: 20140408
